FAERS Safety Report 8559902-7 (Version None)
Quarter: 2012Q3

REPORT INFORMATION
  Report Type: 
  Country: None (occurrence: None)
  Receive Date: 20120802
  Receipt Date: 20120726
  Transmission Date: 20120928
  Serious: Yes (Other)
  Sender: FDA-Public Use
  Company Number: PHEH2012US014806

PATIENT
  Sex: Female

DRUGS (1)
  1. FEMARA [Suspect]
     Dates: start: 20090801, end: 20100401

REACTIONS (3)
  - BREAST CANCER [None]
  - NEOPLASM MALIGNANT [None]
  - LYMPHADENOPATHY [None]
